FAERS Safety Report 23888675 (Version 1)
Quarter: 2024Q2

REPORT INFORMATION
  Report Type: Spontaneous
  Country: US (occurrence: None)
  Receive Date: 20240522
  Receipt Date: 20240522
  Transmission Date: 20240716
  Serious: Yes (Hospitalization)
  Sender: FDA-Public Use
  Company Number: None

PATIENT
  Sex: Male

DRUGS (1)
  1. PROCRIT [Suspect]
     Active Substance: ERYTHROPOIETIN
     Indication: Anaemia of chronic disease
     Dosage: OTHER STRENGTH : U/ML;?FREQUENCY : WEEKLY;?
     Route: 058
     Dates: start: 202404

REACTIONS (3)
  - Renal disorder [None]
  - Blood potassium increased [None]
  - White blood cell count increased [None]
